FAERS Safety Report 4691585-9 (Version None)
Quarter: 2005Q2

REPORT INFORMATION
  Report Type: 
  Country: None (occurrence: None)
  Receive Date: 20050616
  Receipt Date: 20050405
  Transmission Date: 20051028
  Serious: Yes (Hospitalization)
  Sender: FDA-Public Use
  Company Number: AU-BOEHRINGER INGELHEIM PHARMACEUTICALS, INC.-2005-BP-06351AU

PATIENT
  Sex: Male
  Weight: 62.7 kg

DRUGS (2)
  1. MICARDIS [Suspect]
     Indication: HYPERTENSION
     Route: 048
     Dates: start: 20050316, end: 20050322
  2. X-RAY THERAPY [Concomitant]
     Indication: BLADDER CANCER

REACTIONS (5)
  - DIZZINESS [None]
  - FEELING ABNORMAL [None]
  - HYPOTENSION [None]
  - LETHARGY [None]
  - ORTHOSTATIC HYPOTENSION [None]
